FAERS Safety Report 4898877-9 (Version None)
Quarter: 2006Q1

REPORT INFORMATION
  Report Type: 
  Country: None (occurrence: None)
  Receive Date: 20060130
  Receipt Date: 20060120
  Transmission Date: 20060701
  Serious: Yes (Death)
  Sender: FDA-Public Use
  Company Number: 2006-01-1331

PATIENT
  Age: 86 Year
  Sex: Female

DRUGS (1)
  1. NITRO-DUR [Suspect]
     Dosage: TRANSDERMAL
     Route: 062

REACTIONS (1)
  - DEATH [None]
